FAERS Safety Report 4766843-X (Version None)
Quarter: 2005Q3

REPORT INFORMATION
  Report Type: 
  Country: None (occurrence: None)
  Receive Date: 20050912
  Receipt Date: 20050829
  Transmission Date: 20060218
  Serious: Yes (Hospitalization)
  Sender: FDA-Public Use
  Company Number: 2005121715

PATIENT
  Sex: Female
  Weight: 72.5755 kg

DRUGS (3)
  1. DETROL LA [Suspect]
     Indication: URINARY TRACT DISORDER
     Dosage: 4 MG (4 MG, 1 IN 1 D), ORAL
     Route: 048
  2. ATENOLOL [Concomitant]
  3. FOSAMAX [Concomitant]

REACTIONS (14)
  - BODY HEIGHT DECREASED [None]
  - BONE DISORDER [None]
  - BONE PAIN [None]
  - CONDITION AGGRAVATED [None]
  - DIFFICULTY IN WALKING [None]
  - DYSURIA [None]
  - GASTROOESOPHAGEAL REFLUX DISEASE [None]
  - HERPES ZOSTER [None]
  - HIATUS HERNIA [None]
  - HYSTERECTOMY [None]
  - JOINT SPRAIN [None]
  - MOBILITY DECREASED [None]
  - ROAD TRAFFIC ACCIDENT [None]
  - WEIGHT DECREASED [None]
